FAERS Safety Report 10035332 (Version 2)
Quarter: 2014Q1

REPORT INFORMATION
  Report Type: Spontaneous
  Country: MY (occurrence: MY)
  Receive Date: 20140325
  Receipt Date: 20140325
  Transmission Date: 20141002
  Serious: Yes (Hospitalization, Other)
  Sender: FDA-Public Use
  Company Number: MY-PFIZER INC-2014019310

PATIENT
  Age: 27 Year
  Sex: Female

DRUGS (10)
  1. SALAZOPYRIN EN [Suspect]
     Indication: RHEUMATOID FACTOR INCREASED
     Dosage: 500 MG, BD
     Route: 048
     Dates: start: 20120924, end: 20120930
  2. ARCOXIA [Suspect]
     Indication: BACK PAIN
     Dosage: 120 MG, AS NEEDED
     Route: 048
     Dates: start: 20120924, end: 20120928
  3. CLOXACILLIN [Suspect]
     Indication: THROMBOPHLEBITIS
     Dosage: 500 MG, QID
     Route: 042
     Dates: start: 20121012, end: 20121014
  4. OMEPRAZOLE [Concomitant]
     Indication: ULCER
     Dosage: 20 MG, ON
     Route: 048
     Dates: start: 20121012, end: 20121016
  5. ROCALTROL [Concomitant]
     Indication: OSTEOPOROSIS
     Dosage: 0.25 UG, OD
     Route: 048
     Dates: start: 20121012, end: 20121017
  6. PREDNISOLONE [Concomitant]
     Indication: RASH
     Dosage: 30 MG, OD
     Route: 048
     Dates: start: 20121012, end: 20121016
  7. BETNESOL [Concomitant]
     Indication: CONJUNCTIVITIS
     Dosage: QID
     Route: 057
     Dates: start: 20121013, end: 20121015
  8. CHLORAMPHENICOL [Concomitant]
     Indication: CONJUNCTIVITIS
     Dosage: 4 HRLY
     Dates: start: 20121013, end: 20121015
  9. LACTULOSE [Concomitant]
     Indication: CONSTIPATION
     Dosage: 15 ML, TDS
     Route: 048
     Dates: start: 20121012, end: 20121017
  10. CMC-544 [Concomitant]
     Indication: CONJUNCTIVITIS
     Dosage: QID
     Dates: start: 20121013, end: 20121015

REACTIONS (11)
  - Pyrexia [Recovered/Resolved]
  - Photophobia [Recovered/Resolved]
  - Conjunctivitis [Recovered/Resolved]
  - Mouth ulceration [Recovered/Resolved]
  - Myalgia [Recovered/Resolved]
  - Rash maculo-papular [Recovered/Resolved]
  - Arthralgia [Recovered/Resolved]
  - Swelling face [Recovered/Resolved]
  - Rhinorrhoea [Recovered/Resolved]
  - Dyspnoea [Recovered/Resolved]
  - Liver function test abnormal [Recovered/Resolved]
